FAERS Safety Report 4926177-7 (Version None)
Quarter: 2006Q1

REPORT INFORMATION
  Report Type: 
  Country: None (occurrence: None)
  Receive Date: 20060228
  Receipt Date: 20060217
  Transmission Date: 20060701
  Serious: Yes (Other)
  Sender: FDA-Public Use
  Company Number: PHEH2006US02358

PATIENT
  Sex: Male

DRUGS (5)
  1. ZOMETA [Suspect]
     Indication: MULTIPLE MYELOMA
     Dosage: 4 MG EVERY MONTH
     Route: 042
     Dates: start: 20020624, end: 20030531
  2. ZOMETA [Suspect]
     Dosage: 4 MG EVERY MONTH
     Route: 042
     Dates: start: 20040830, end: 20050624
  3. CHLORPROPAMIDE [Concomitant]
     Dosage: 250 MG, BID
  4. ALLOPURINOL [Concomitant]
     Dosage: 300 MG, QD
  5. ACTOS [Concomitant]
     Dosage: 15 MG, QD

REACTIONS (1)
  - OSTEONECROSIS [None]
